FAERS Safety Report 17390909 (Version 1)
Quarter: 2020Q1

REPORT INFORMATION
  Report Type: Spontaneous
  Country: CH (occurrence: CH)
  Receive Date: 20200207
  Receipt Date: 20200207
  Transmission Date: 20200409
  Serious: Yes (Other)
  Sender: FDA-Public Use
  Company Number: CH-BRISTOL-MYERS SQUIBB COMPANY-BMS-2020-009715

PATIENT

DRUGS (1)
  1. NIVOLUMAB [Suspect]
     Active Substance: NIVOLUMAB
     Indication: HEPATOCELLULAR CARCINOMA
     Dosage: UNK
     Route: 065

REACTIONS (5)
  - Laboratory test abnormal [Recovering/Resolving]
  - Diabetes mellitus [Recovering/Resolving]
  - Hyperthermia [Recovering/Resolving]
  - Shock [Recovering/Resolving]
  - Intentional product use issue [Unknown]
